FAERS Safety Report 25274109 (Version 2)
Quarter: 2025Q3

REPORT INFORMATION
  Report Type: Report from Study
  Country: EU (occurrence: EU)
  Receive Date: 20250506
  Receipt Date: 20250704
  Transmission Date: 20251021
  Serious: Yes (Other)
  Sender: AMGEN
  Company Number: EU-AMGEN-BELNI2025088431

PATIENT
  Sex: Female

DRUGS (3)
  1. TEPROTUMUMAB [Suspect]
     Active Substance: TEPROTUMUMAB
     Indication: Product used for unknown indication
     Route: 040
     Dates: start: 202503
  2. TEPROTUMUMAB [Suspect]
     Active Substance: TEPROTUMUMAB
     Route: 040
     Dates: start: 2025
  3. TEPROTUMUMAB [Suspect]
     Active Substance: TEPROTUMUMAB
     Route: 040
     Dates: start: 20250618

REACTIONS (1)
  - Deafness unilateral [Unknown]

NARRATIVE: CASE EVENT DATE: 20250101
